FAERS Safety Report 7751274-0 (Version None)
Quarter: 2011Q3

REPORT INFORMATION
  Report Type: 
  Country: None (occurrence: None)
  Receive Date: 20110914
  Receipt Date: 20110908
  Transmission Date: 20111222
  Serious: Yes (Hospitalization)
  Sender: FDA-Public Use
  Company Number: US-ABBOTT-11P-163-0852789-00

PATIENT
  Sex: Male
  Weight: 99.88 kg

DRUGS (3)
  1. NIASPAN [Suspect]
     Indication: CAROTID ARTERIOSCLEROSIS
     Dosage: AT BEDTIME
     Route: 048
     Dates: start: 20110201
  2. ASPIRIN [Concomitant]
     Indication: PREMEDICATION
  3. RAMIPRIL [Concomitant]
     Indication: HYPERTENSION
     Route: 048

REACTIONS (4)
  - CHEST DISCOMFORT [None]
  - HYPERTENSION [None]
  - FLUSHING [None]
  - CHEST PAIN [None]
